FAERS Safety Report 4927125-6 (Version None)
Quarter: 2006Q1

REPORT INFORMATION
  Report Type: 
  Country: None (occurrence: None)
  Receive Date: 20060228
  Receipt Date: 20060221
  Transmission Date: 20060701
  Serious: Yes (Death)
  Sender: FDA-Public Use
  Company Number: US-KINGPHARMUSA00001-K200600240

PATIENT
  Age: 87 Year
  Sex: Female

DRUGS (11)
  1. ALTACE [Suspect]
     Indication: CARDIAC FAILURE
     Dosage: 2.5 MG, QD
     Route: 048
     Dates: end: 20060116
  2. DIGOXIN [Suspect]
     Indication: ATRIAL FIBRILLATION
     Dosage: .125 MG, QD
     Route: 048
     Dates: end: 20060116
  3. CARDENSIEL [Suspect]
     Indication: CARDIAC FAILURE
     Dosage: 1.25 MG, QD
     Route: 048
     Dates: end: 20060116
  4. BACTRIM [Suspect]
     Indication: URINARY TRACT INFECTION
     Dosage: 2 U, QD
     Route: 048
     Dates: start: 20060111, end: 20060116
  5. KALEORID [Suspect]
     Dosage: 600 MG, QD
     Route: 048
  6. PREVISCAN [Concomitant]
     Indication: ATRIAL FIBRILLATION
     Dosage: 5 MG, UNK
     Route: 048
     Dates: end: 20060116
  7. FUROSEMIDE [Concomitant]
     Dosage: 40 MG, UNK
     Route: 048
     Dates: end: 20060116
  8. NEO-MERCAZOLE TAB [Concomitant]
     Dosage: 20 MG, UNK
     Route: 048
     Dates: end: 20060116
  9. CYNOMEL [Concomitant]
     Dosage: 25 UG, UNK
     Route: 048
     Dates: end: 20060116
  10. OXYBUTININE [Concomitant]
     Dosage: 1.5 U, UNK
     Route: 048
     Dates: end: 20060116
  11. SPASFON [Concomitant]
     Dosage: 2 U, UNK
     Route: 048
     Dates: end: 20060116

REACTIONS (7)
  - ANAEMIA [None]
  - CIRCULATORY COLLAPSE [None]
  - GASTROINTESTINAL HAEMORRHAGE [None]
  - HYPERKALAEMIA [None]
  - RENAL FAILURE ACUTE [None]
  - SYNCOPE [None]
  - VENTRICULAR ARRHYTHMIA [None]
